FAERS Safety Report 5727207-5 (Version None)
Quarter: 2008Q2

REPORT INFORMATION
  Report Type: 
  Country: None (occurrence: None)
  Receive Date: 20080430
  Receipt Date: 20080422
  Transmission Date: 20081010
  Serious: Yes (Hospitalization)
  Sender: FDA-Public Use
  Company Number: TIF2008A00053

PATIENT
  Age: 63 Year
  Sex: Male

DRUGS (8)
  1. ACTOS [Suspect]
     Indication: TYPE 2 DIABETES MELLITUS
     Dosage: 30 MG (30 MG, 1 IN 1 D) ORAL
     Route: 048
     Dates: start: 19990101, end: 20070930
  2. RAMIPRIL [Concomitant]
  3. ROCALTROL [Concomitant]
  4. GLIPIZIDE [Concomitant]
  5. LASIX [Concomitant]
  6. CARVEDILOL [Concomitant]
  7. ALLOPURINOL [Concomitant]
  8. XALACOM (TIMOLOL MALEATE, LATANOPROST) [Concomitant]

REACTIONS (2)
  - MULTIPLE FRACTURES [None]
  - OSTEOLYSIS [None]
